FAERS Safety Report 19482070 (Version 1)
Quarter: 2021Q3

REPORT INFORMATION
  Report Type: Other
  Country: CN (occurrence: CN)
  Receive Date: 20210701
  Receipt Date: 20210701
  Transmission Date: 20211014
  Serious: Yes (Other)
  Sender: FDA-Public Use
  Company Number: CN-ROCHE-2858291

PATIENT

DRUGS (8)
  1. ENTECAVIR. [Concomitant]
     Active Substance: ENTECAVIR
  2. CHLOROQUINE PHOSPHATE. [Suspect]
     Active Substance: CHLOROQUINE PHOSPHATE
     Indication: COVID-19
     Dosage: FOR 5 TO 10 DAYS.
     Route: 065
  3. COMPOUND GLYCYRRHIZIN TABLETS [Concomitant]
     Active Substance: GLYCYRRHIZIN
  4. LOPINAVIR/RITONAVIR [Suspect]
     Active Substance: LOPINAVIR\RITONAVIR
     Indication: COVID-19
     Dosage: 1 DF=1PILL, PILLS, 200MG/50MG PER PILL, ORDINARY PATIENTS?WERE TREATED FOR 7?10 DAYS, SEVERE PATIENT
     Route: 065
  5. OSELTAMIVIR [Suspect]
     Active Substance: OSELTAMIVIR
     Indication: COVID-19
     Dosage: TREATMENT FOR 5?7 DAYS
     Route: 065
  6. ESOMEPRAZOLE. [Concomitant]
     Active Substance: ESOMEPRAZOLE MAGNESIUM
  7. MOSAPRIDE [Concomitant]
     Active Substance: MOSAPRIDE
  8. MONTMORILLONITE [Concomitant]
     Active Substance: MONTMORILLONITE

REACTIONS (12)
  - Vomiting [Unknown]
  - Nausea [Unknown]
  - Transaminases abnormal [Unknown]
  - Off label use [Unknown]
  - Cough [Unknown]
  - Hypertension [Unknown]
  - Diarrhoea [Unknown]
  - Chronic hepatitis B [Unknown]
  - Pulmonary tuberculosis [Unknown]
  - Decreased appetite [Unknown]
  - Liver injury [Recovered/Resolved]
  - Pyrexia [Unknown]
